FAERS Safety Report 6871199-2 (Version None)
Quarter: 2010Q3

REPORT INFORMATION
  Report Type: 
  Country: None (occurrence: None)
  Receive Date: 20100723
  Receipt Date: 20100719
  Transmission Date: 20110219
  Serious: Yes (Life-Threatening, Hospitalization)
  Sender: FDA-Public Use
  Company Number: GB-ROCHE-715574

PATIENT
  Age: 71 Year
  Sex: Male

DRUGS (2)
  1. XELODA [Suspect]
     Indication: COLON CANCER
     Route: 048
     Dates: start: 20100617
  2. LOPERAMIDE [Concomitant]
     Route: 048
     Dates: start: 20100617

REACTIONS (3)
  - ACUTE MYOCARDIAL INFARCTION [None]
  - CHEST PAIN [None]
  - CORONARY ARTERY DISEASE [None]
